FAERS Safety Report 9797558 (Version 2)
Quarter: 2014Q2

REPORT INFORMATION
  Report Type: Spontaneous
  Country: JP (occurrence: JP)
  Receive Date: 20140106
  Receipt Date: 20140620
  Transmission Date: 20141212
  Serious: Yes (Disabling, Other)
  Sender: FDA-Public Use
  Company Number: JP-ROCHE-1328460

PATIENT
  Age: 49 Year
  Sex: Female

DRUGS (14)
  1. DENOSINE [Suspect]
     Indication: CYTOMEGALOVIRUS CHORIORETINITIS
     Dosage: SYSTEMIC
     Route: 042
     Dates: start: 1997
  2. DENOSINE [Suspect]
     Indication: LYMPHOPENIA
     Route: 065
  3. DENOSINE [Suspect]
     Route: 065
  4. DENOSINE [Suspect]
     Route: 042
     Dates: start: 200209, end: 200412
  5. FOSCARNET [Suspect]
     Indication: CYTOMEGALOVIRUS CHORIORETINITIS
     Route: 065
  6. CIDOFOVIR [Concomitant]
     Route: 065
     Dates: start: 2001
  7. INTERLEUKIN 2 [Concomitant]
     Dosage: THE FIRST DOSE WAS 350,000 IU X 2 FOR 5 DAYS: TOTAL 3,500,000 IU.
     Route: 058
  8. INTERLEUKIN 2 [Concomitant]
     Dosage: THE FIRST DOSE WAS 350,000 IU 9 2 FOR 5 DAYS: TOTAL 3,500,000 IU.
     Route: 058
     Dates: start: 200202
  9. INTERLEUKIN 2 [Concomitant]
     Dosage: A THIRD DOSE OF IL-2 (1,050,000 IU X 2 FOR 5 DAYS)
     Route: 058
     Dates: start: 200208
  10. INTERLEUKIN 2 [Concomitant]
     Dosage: 350,000 IU THREE TIMES A WEEK
     Route: 058
     Dates: start: 200502
  11. VALGANCICLOVIR [Concomitant]
     Route: 048
     Dates: start: 200412
  12. VALGANCICLOVIR [Concomitant]
     Dosage: TAPERED THE DOSE OF VALGANCICLOVIR (1,800 MG X 7 DAYS/MONTH)
     Route: 048
     Dates: end: 200907
  13. FLUCONAZOLE [Concomitant]
     Route: 048
     Dates: start: 200404
  14. AZITHROMYCIN [Concomitant]
     Route: 065
     Dates: end: 200506

REACTIONS (5)
  - Blindness [Unknown]
  - Atrophy of globe [Unknown]
  - Retinal detachment [Unknown]
  - Cytomegalovirus chorioretinitis [Unknown]
  - Drug ineffective [Unknown]
